FAERS Safety Report 7476537-8 (Version None)
Quarter: 2011Q2

REPORT INFORMATION
  Report Type: 
  Country: None (occurrence: None)
  Receive Date: 20110510
  Receipt Date: 20110510
  Transmission Date: 20111010
  Serious: Yes (Hospitalization, Other)
  Sender: FDA-Public Use
  Company Number: None

PATIENT
  Age: 12 Year
  Sex: Female
  Weight: 30.8 kg

DRUGS (5)
  1. VIAGRA [Suspect]
     Indication: PULMONARY HYPERTENSION
     Dosage: 25MG THREE TIMES DAILY PO
     Route: 048
     Dates: start: 20100324, end: 20100325
  2. LEUPROLIDE ACETATE [Concomitant]
  3. CIALIS [Suspect]
     Indication: PULMONARY HYPERTENSION
     Dosage: 20MG ONCE DAILY PO
     Route: 048
     Dates: start: 20100326, end: 20100326
  4. PREDNISONE [Concomitant]
  5. ALBUTEROL [Concomitant]

REACTIONS (10)
  - CLITORAL ENGORGEMENT [None]
  - OEDEMA GENITAL [None]
  - CIRCUMORAL OEDEMA [None]
  - PAIN IN JAW [None]
  - LIP SWELLING [None]
  - FACE OEDEMA [None]
  - NAUSEA [None]
  - ECCHYMOSIS [None]
  - LOCALISED OEDEMA [None]
  - LIP DISORDER [None]
